FAERS Safety Report 8566406-4 (Version None)
Quarter: 2012Q3

REPORT INFORMATION
  Report Type: 
  Country: None (occurrence: None)
  Receive Date: 20120730
  Receipt Date: 20120730
  Transmission Date: 20120928
  Serious: Yes (Hospitalization)
  Sender: FDA-Public Use
  Company Number: None

PATIENT
  Sex: Male
  Weight: 68.6 kg

DRUGS (13)
  1. EVEROLIMUS (AFINITOR, RAD-001) 200 MG [Suspect]
  2. HYDROCHLOROTHIAZIDE [Concomitant]
  3. GLUCOPHAGE [Concomitant]
  4. SIMVASTATIN [Concomitant]
  5. OCTREOTIDE ACETATE [Suspect]
  6. MICRONASE [Concomitant]
  7. MYCELEX [Concomitant]
  8. ACETAMINOPHEN [Concomitant]
  9. ASPIRIN [Concomitant]
  10. PERCOCET [Concomitant]
  11. AFINITOR [Concomitant]
  12. ACCUPRIL [Concomitant]
  13. FENTANYL [Concomitant]

REACTIONS (2)
  - MUSCULAR WEAKNESS [None]
  - DIZZINESS [None]
